FAERS Safety Report 9216612 (Version 1)
Quarter: 2013Q1

REPORT INFORMATION
  Report Type: Spontaneous
  Country: US (occurrence: None)
  Receive Date: 20120827
  Receipt Date: 20120827
  Transmission Date: 20140127
  Serious: No
  Sender: FDA-Public Use
  Company Number: 354784

PATIENT
  Age: 36 Year
  Sex: Female

DRUGS (2)
  1. VICTOZA [Suspect]
     Indication: INSULIN RESISTANCE
     Route: 058
  2. METFORMIN ( METFORMIN) [Concomitant]

REACTIONS (5)
  - Decreased appetite [None]
  - Vomiting [None]
  - Nausea [None]
  - Diarrhoea [None]
  - Headache [None]
